FAERS Safety Report 8900795 (Version 1)
Quarter: 2012Q4

REPORT INFORMATION
  Report Type: Report from Study
  Country: DK (occurrence: DK)
  Receive Date: 20121109
  Receipt Date: 20121109
  Transmission Date: 20130627
  Serious: Yes (Hospitalization)
  Sender: FDA-Public Use
  Company Number: DK-ROCHE-1083322

PATIENT
  Age: 66 Year
  Sex: Female
  Weight: 75.2 kg

DRUGS (10)
  1. BLINDED PERTUZUMAB [Suspect]
     Indication: BREAST CANCER
     Dosage: most recent dose 13/Aug/2012, 24/Sep/2012; loading dose, cycle 1
     Route: 042
     Dates: start: 20120813
  2. BLINDED PERTUZUMAB [Suspect]
     Dosage: maintanance dose
     Route: 042
  3. TRASTUZUMAB [Suspect]
     Indication: BREAST CANCER
     Dosage: most recent dose 13/Aug/2012, 24/Sep/2012; loading dose
     Route: 042
     Dates: start: 20120813
  4. TRASTUZUMAB [Suspect]
     Dosage: maintanance dose
     Route: 042
  5. EPIRUBICIN [Suspect]
     Indication: BREAST CANCER
     Dosage: date of last dose prior to onset of AE:16/Jul/2012
     Route: 042
     Dates: start: 20120606
  6. CYCLOPHOSPHAMIDE [Suspect]
     Indication: BREAST CANCER
     Dosage: , date of last dose prior to onset of AE:16/Jul/2012
     Route: 042
     Dates: start: 20120606, end: 20120808
  7. CYCLOPHOSPHAMIDE [Suspect]
     Route: 042
     Dates: start: 20120813
  8. FLUOROURACIL [Suspect]
     Indication: BREAST CANCER
     Dosage: dosage form: concentrate for solution for infusion, date of last dose prior to onset of AE:16/Jul/20
     Route: 042
     Dates: start: 20120606
  9. DOCETAXEL [Suspect]
     Indication: BREAST CANCER
     Dosage: most recent dose 13/Aug/2012, 24/Sep/2012
     Route: 042
     Dates: start: 20120813
  10. LANSOPRAZOLE [Concomitant]
     Route: 065
     Dates: start: 20120813

REACTIONS (4)
  - Febrile neutropenia [Recovered/Resolved]
  - Sepsis [Recovered/Resolved]
  - Skin infection [Recovered/Resolved]
  - Sepsis [Recovered/Resolved]
